FAERS Safety Report 9470835 (Version 1)
Quarter: 2013Q3

REPORT INFORMATION
  Report Type: Spontaneous
  Country: US (occurrence: None)
  Receive Date: 20130820
  Receipt Date: 20130820
  Transmission Date: 20140515
  Serious: Yes (Other)
  Sender: FDA-Public Use
  Company Number: None

PATIENT
  Age: 52 Year
  Sex: Female
  Weight: 57.61 kg

DRUGS (7)
  1. READI-CAT 2.1% BARIUM SULFATE EZ EM [Suspect]
     Indication: COMPUTERISED TOMOGRAM ABDOMEN
     Dosage: 2 BOTTLES BY MOUTH BEFORE THE TEST
     Route: 048
     Dates: start: 20130731, end: 20130731
  2. TEGRETOL [Concomitant]
  3. METOPROLOL [Concomitant]
  4. PEPCID [Concomitant]
  5. FIORICENT [Concomitant]
  6. CALTRATE [Concomitant]
  7. VITAFUSION MULTIVITAMIN [Concomitant]

REACTIONS (6)
  - Abdominal pain upper [None]
  - Dizziness [None]
  - Headache [None]
  - Chills [None]
  - Presyncope [None]
  - Blood pressure decreased [None]
